FAERS Safety Report 9966423 (Version 2)
Quarter: 2014Q1

REPORT INFORMATION
  Report Type: Spontaneous
  Country: US (occurrence: US)
  Receive Date: 20140305
  Receipt Date: 20140305
  Transmission Date: 20141002
  Serious: No
  Sender: FDA-Public Use
  Company Number: US-ABBVIE-13P-163-1109273-00

PATIENT
  Sex: Male
  Weight: 80.36 kg

DRUGS (7)
  1. HUMIRA [Suspect]
     Indication: PSORIASIS
     Dates: start: 2003
  2. HUMIRA [Suspect]
     Indication: PSORIATIC ARTHROPATHY
  3. TORVASTATIN [Concomitant]
     Indication: HYPERLIPIDAEMIA
  4. ALLOPURINOL [Concomitant]
     Indication: NEPHROPATHY
  5. ZEMPLAR [Concomitant]
     Indication: NEPHROPATHY
  6. AMLODIPINE [Concomitant]
     Indication: HYPERTENSION
  7. ACTONEL [Concomitant]
     Indication: NEPHROPATHY

REACTIONS (4)
  - Drug effect decreased [Not Recovered/Not Resolved]
  - Psoriatic arthropathy [Not Recovered/Not Resolved]
  - Psoriatic arthropathy [Not Recovered/Not Resolved]
  - Arthralgia [Not Recovered/Not Resolved]
